FAERS Safety Report 5046898-8 (Version None)
Quarter: 2006Q2

REPORT INFORMATION
  Report Type: 
  Country: None (occurrence: None)
  Receive Date: 20060630
  Receipt Date: 20060616
  Transmission Date: 20061013
  Serious: Yes (Hospitalization, Other)
  Sender: FDA-Public Use
  Company Number: HQWYE249916JUN06

PATIENT
  Age: 76 Year
  Sex: Female

DRUGS (22)
  1. PANTOPRAZOLE SODIUM [Suspect]
     Dosage: 20 MG, ORAL
     Route: 048
     Dates: start: 20050922, end: 20051115
  2. ALTIM (CORTIVAZOL) [Suspect]
     Dosage: DF INTRA-ARTERIAL
     Route: 013
     Dates: start: 20050930, end: 20051101
  3. CALSYN (CALCITONIN, SALMON) [Suspect]
     Dosage: DF
     Dates: start: 20051116, end: 20051128
  4. COAPROVEL (IRBESARTAN/HYDROCHLOROTHIAZIDE) [Suspect]
     Dosage: 1 DOSAGE FORM 1X PER 1 DAY ORAL
     Route: 048
     Dates: start: 20040615, end: 20051214
  5. LAMALINE (BELLADONNA EXTRACT/CAFFEINE/OPIUM TINCTURE/PARACETAMOL) [Suspect]
     Dosage: DF
     Dates: start: 20051116, end: 20051128
  6. MONOCRIXO LP (TRAMADOL) [Suspect]
     Dosage: 100 MG, ORAL
     Route: 048
     Dates: start: 20051031, end: 20051115
  7. MOTILIUM [Suspect]
     Dosage: DF
     Dates: start: 20051116, end: 20051128
  8. SOLU-MEDROL [Suspect]
     Dosage: 40 MG IM
     Route: 030
     Dates: start: 20051031, end: 20051106
  9. TETRAZEM (TETRAZEM) [Suspect]
     Dosage: 50 MG ORAL
     Route: 048
     Dates: start: 20051031, end: 20051115
  10. EFFEXOR [Concomitant]
  11. ANETHOLE (ANETHOLE) [Concomitant]
  12. SELEGILINE (SELEGILINE) [Concomitant]
  13. CLONAZEPAM [Concomitant]
  14. FUROSEMIDE [Concomitant]
  15. DILTIAZEM [Concomitant]
  16. MACROGOL (MACROGOL) [Concomitant]
  17. PROPOXYPHENE (DEXTROPROPOXYPHENE) [Concomitant]
  18. ACETAMINOPHEN [Concomitant]
  19. HEXABRIX [Concomitant]
  20. TRAMADOL HCL [Concomitant]
  21. VOLTAREN [Concomitant]
  22. ENDOTELON (HERBAL EXTRACTS NOS/VITIS VINIFERA) [Concomitant]

REACTIONS (3)
  - BLOOD PRESSURE ABNORMAL [None]
  - SYSTEMIC LUPUS ERYTHEMATOSUS RASH [None]
  - TOXIC SKIN ERUPTION [None]
